FAERS Safety Report 19901516 (Version 2)
Quarter: 2021Q4

REPORT INFORMATION
  Report Type: Spontaneous
  Country: IT (occurrence: IT)
  Receive Date: 20210930
  Receipt Date: 20211008
  Transmission Date: 20220303
  Serious: Yes (Life-Threatening, Other)
  Sender: FDA-Public Use
  Company Number: IT-MLMSERVICE-20210917-3111739-1

PATIENT
  Age: 71 Year
  Sex: Male

DRUGS (2)
  1. HEPARIN SODIUM [Suspect]
     Active Substance: HEPARIN SODIUM
     Dosage: UNK
  2. FONDAPARINUX [Concomitant]
     Active Substance: FONDAPARINUX
     Dosage: UNK

REACTIONS (1)
  - Heparin-induced thrombocytopenia [Recovering/Resolving]
